FAERS Safety Report 10345069 (Version 2)
Quarter: 2014Q3

REPORT INFORMATION
  Report Type: Spontaneous
  Country: US (occurrence: None)
  Receive Date: 20140724
  Receipt Date: 20140730
  Transmission Date: 20150326
  Serious: Yes (Other)
  Sender: FDA-Public Use
  Company Number: ADR-2014-01284

PATIENT
  Age: 59 Year
  Sex: Male

DRUGS (1)
  1. BACLOFEN. [Suspect]
     Active Substance: BACLOFEN
     Indication: MULTIPLE SCLEROSIS

REACTIONS (7)
  - Muscle spasms [None]
  - Post procedural complication [None]
  - Condition aggravated [None]
  - Unevaluable event [None]
  - Gastrointestinal disorder [None]
  - Urinary tract infection [None]
  - Nephrolithiasis [None]
